FAERS Safety Report 5205201-0 (Version None)
Quarter: 2007Q1

REPORT INFORMATION
  Report Type: 
  Country: None (occurrence: None)
  Receive Date: 20070110
  Receipt Date: 20070101
  Transmission Date: 20070707
  Serious: Yes (Other)
  Sender: FDA-Public Use
  Company Number: AU-PFIZER INC-2006144730

PATIENT
  Age: 36 Year
  Sex: Male

DRUGS (3)
  1. ZOLOFT [Suspect]
     Indication: PANIC ATTACK
     Route: 048
  2. ZOLOFT [Suspect]
     Indication: DEPRESSION
  3. DIAZEPAM [Suspect]
     Route: 048

REACTIONS (7)
  - DEAFNESS NEUROSENSORY [None]
  - LABYRINTHITIS [None]
  - NYSTAGMUS [None]
  - TINNITUS [None]
  - TYMPANIC MEMBRANE DISORDER [None]
  - VERTIGO [None]
  - VOMITING [None]
